FAERS Safety Report 16660274 (Version 1)
Quarter: 2019Q3

REPORT INFORMATION
  Report Type: Spontaneous
  Country: AU (occurrence: AU)
  Receive Date: 20190802
  Receipt Date: 20190802
  Transmission Date: 20191004
  Serious: Yes (Other)
  Sender: FDA-Public Use
  Company Number: AU-TEVA-2006A-00643

PATIENT
  Age: 40 Year
  Sex: Male

DRUGS (5)
  1. OMEPRAZOLE. [Suspect]
     Active Substance: OMEPRAZOLE
     Indication: PRODUCT USED FOR UNKNOWN INDICATION
     Route: 048
  2. AMISULPRIDE [Suspect]
     Active Substance: AMISULPRIDE
     Indication: PRODUCT USED FOR UNKNOWN INDICATION
     Dosage: 32 GRAM DAILY;
     Route: 048
  3. MIRTAZAPINE. [Suspect]
     Active Substance: MIRTAZAPINE
     Indication: PRODUCT USED FOR UNKNOWN INDICATION
     Dosage: 300 MILLIGRAM DAILY;
     Route: 048
  4. ERGENYL [Suspect]
     Active Substance: VALPROIC ACID
     Indication: PRODUCT USED FOR UNKNOWN INDICATION
     Dosage: 7 GRAM DAILY;
     Route: 048
  5. AMITRIPTYLINE [Suspect]
     Active Substance: AMITRIPTYLINE
     Indication: PRODUCT USED FOR UNKNOWN INDICATION
     Dosage: 1.25 GRAM DAILY;
     Route: 048

REACTIONS (4)
  - Tachycardia [Unknown]
  - Overdose [Unknown]
  - Torsade de pointes [Unknown]
  - Electrocardiogram QT prolonged [Unknown]
